FAERS Safety Report 19742112 (Version 2)
Quarter: 2021Q3

REPORT INFORMATION
  Report Type: Spontaneous
  Country: US (occurrence: US)
  Receive Date: 20210824
  Receipt Date: 20210916
  Transmission Date: 20211014
  Serious: No
  Sender: FDA-Public Use
  Company Number: US-PFIZER INC-202100985933

PATIENT
  Age: 65 Year
  Sex: Female
  Weight: 78.93 kg

DRUGS (1)
  1. ESTRING [Suspect]
     Active Substance: ESTRADIOL
     Indication: ATROPHIC VULVOVAGINITIS
     Dosage: UNK
     Route: 067

REACTIONS (5)
  - Device use error [Unknown]
  - Discomfort [Unknown]
  - Poor quality device used [Unknown]
  - Device defective [Unknown]
  - Product physical issue [Unknown]
